FAERS Safety Report 8801876 (Version 1)
Quarter: 2012Q4

REPORT INFORMATION
  Report Type: 
  Country: PE (occurrence: PE)
  Receive Date: 20120921
  Receipt Date: 20120921
  Transmission Date: 20130627
  Serious: Yes (Death)
  Sender: FDA-Public Use
  Company Number: PE-PFIZER INC-2012233781

PATIENT
  Age: 69 Year
  Sex: Male

DRUGS (1)
  1. ALDACTONE [Suspect]

REACTIONS (1)
  - Death [Fatal]
